FAERS Safety Report 5820480-4 (Version None)
Quarter: 2008Q3

REPORT INFORMATION
  Report Type: 
  Country: None (occurrence: None)
  Receive Date: 20080724
  Receipt Date: 20070809
  Transmission Date: 20090109
  Serious: No
  Sender: FDA-Public Use
  Company Number: A0669235A

PATIENT
  Age: 67 Year
  Sex: Female

DRUGS (3)
  1. AVANDIA [Suspect]
     Dosage: 4MG PER DAY
     Route: 048
  2. DEXTROAMPHETAMINE [Concomitant]
  3. DEXAMOL [Concomitant]

REACTIONS (2)
  - BLOOD CHOLESTEROL INCREASED [None]
  - FATIGUE [None]
